FAERS Safety Report 14452323 (Version 2)
Quarter: 2019Q1

REPORT INFORMATION
  Report Type: Report from Study
  Country: US (occurrence: US)
  Receive Date: 20180129
  Receipt Date: 20190313
  Transmission Date: 20190417
  Serious: Yes (Other)
  Sender: FDA-Public Use
  Company Number: PHEH2018US003005

PATIENT
  Sex: Male
  Weight: 74 kg

DRUGS (1)
  1. PROMACTA [Suspect]
     Active Substance: ELTROMBOPAG OLAMINE
     Indication: IMMUNE THROMBOCYTOPENIC PURPURA
     Dosage: 25 MG, QD
     Route: 048
     Dates: start: 20151026

REACTIONS (3)
  - Dysphonia [Unknown]
  - IgA nephropathy [Unknown]
  - Chronic inflammatory demyelinating polyradiculoneuropathy [Unknown]
